FAERS Safety Report 14575867 (Version 5)
Quarter: 2018Q4

REPORT INFORMATION
  Report Type: Spontaneous
  Country: JP (occurrence: JP)
  Receive Date: 20180227
  Receipt Date: 20181204
  Transmission Date: 20190204
  Serious: Yes (Death, Life-Threatening, Hospitalization, Other)
  Sender: FDA-Public Use
  Company Number: JP-009507513-1707JPN001200J

PATIENT
  Age: 54 Year
  Sex: Male
  Weight: 70 kg

DRUGS (1)
  1. KEYTRUDA [Suspect]
     Active Substance: PEMBROLIZUMAB
     Indication: LUNG ADENOCARCINOMA
     Dosage: 200 MG, Q3W
     Route: 041
     Dates: start: 20170418, end: 20170530

REACTIONS (3)
  - Interstitial lung disease [Recovered/Resolved with Sequelae]
  - Malignant neoplasm progression [Fatal]
  - Psoas abscess [Recovered/Resolved]

NARRATIVE: CASE EVENT DATE: 20170613
